FAERS Safety Report 20022302 (Version 4)
Quarter: 2024Q2

REPORT INFORMATION
  Report Type: Other
  Country: US (occurrence: None)
  Receive Date: 20211102
  Receipt Date: 20240530
  Transmission Date: 20240716
  Serious: Yes (Other)
  Sender: FDA-Public Use
  Company Number: US-ROCHE-2942923

PATIENT
  Age: 47 Year
  Sex: Female
  Weight: 77.18 kg

DRUGS (5)
  1. OCREVUS [Suspect]
     Active Substance: OCRELIZUMAB
     Indication: Relapsing-remitting multiple sclerosis
     Dosage: DATE OF TREATMENT: 15/MAR/2023
     Route: 042
     Dates: start: 20180917
  2. FOCALIN [Concomitant]
     Active Substance: DEXMETHYLPHENIDATE HYDROCHLORIDE
     Indication: Attention deficit hyperactivity disorder
     Route: 048
  3. VENLAFAXINE HYDROCHLORIDE [Concomitant]
     Active Substance: VENLAFAXINE HYDROCHLORIDE
     Indication: Anxiety
     Route: 048
  4. VENLAFAXINE HYDROCHLORIDE [Concomitant]
     Active Substance: VENLAFAXINE HYDROCHLORIDE
     Indication: Depression
  5. ELIQUIS [Concomitant]
     Active Substance: APIXABAN
     Indication: Thrombosis
     Route: 048
     Dates: start: 202110

REACTIONS (11)
  - COVID-19 pneumonia [Recovered/Resolved]
  - Thrombosis [Recovered/Resolved]
  - Amnesia [Not Recovered/Not Resolved]
  - COVID-19 [Recovered/Resolved]
  - Sinusitis [Recovered/Resolved]
  - Hypersensitivity [Recovered/Resolved]
  - Discomfort [Unknown]
  - Feeling cold [Unknown]
  - Rash [Unknown]
  - Hypoaesthesia [Unknown]
  - Stress [Unknown]

NARRATIVE: CASE EVENT DATE: 20210904
